FAERS Safety Report 5742158-8 (Version None)
Quarter: 2008Q2

REPORT INFORMATION
  Report Type: 
  Country: None (occurrence: None)
  Receive Date: 20080519
  Receipt Date: 20080519
  Transmission Date: 20081010
  Serious: Yes (Life-Threatening)
  Sender: FDA-Public Use
  Company Number: None

PATIENT
  Age: 86 Year
  Sex: Female
  Weight: 90.7194 kg

DRUGS (4)
  1. HEPARIN SODIUM [Suspect]
     Indication: PULMONARY EMBOLISM
     Dosage: 5000 UNITS X 1 DOSE IV BOLUS LESS THAN 3 MINUTES
     Route: 040
     Dates: start: 20080514, end: 20080514
  2. HEPARIN SODIUM [Suspect]
     Dosage: 1100 UNITS/HR -27.5ML/HR- CONTINUOUS DRIP IV DRIP
     Route: 041
  3. TYLENOL [Concomitant]
  4. MORPHINE [Concomitant]

REACTIONS (5)
  - DEPRESSED LEVEL OF CONSCIOUSNESS [None]
  - DYSPNOEA [None]
  - ERYTHEMA [None]
  - HEART RATE DECREASED [None]
  - OXYGEN SATURATION DECREASED [None]
